FAERS Safety Report 7227674-4 (Version None)
Quarter: 2011Q1

REPORT INFORMATION
  Report Type: 
  Country: None (occurrence: None)
  Receive Date: 20110114
  Receipt Date: 20110111
  Transmission Date: 20110831
  Serious: No
  Sender: FDA-Public Use
  Company Number: US-PFIZER INC-2011007267

PATIENT
  Sex: Male
  Weight: 84 kg

DRUGS (9)
  1. MONTELUKAST [Concomitant]
     Dosage: 10 MG, UNK
  2. MEXILETINE [Concomitant]
     Dosage: 150 MG, 2X/DAY
  3. WARFARIN [Concomitant]
     Dosage: UNK, AS NEEDED
  4. LOVASTATIN [Concomitant]
     Indication: BLOOD CHOLESTEROL INCREASED
     Dosage: 20 MG, UNK
  5. LISINOPRIL [Concomitant]
     Indication: HYPERTENSION
     Dosage: 5 MG, UNK
  6. SPIRONOLACTONE [Concomitant]
     Dosage: 25 MG, UNK
  7. PANTOPRAZOLE [Suspect]
     Indication: GASTROOESOPHAGEAL REFLUX DISEASE
     Dosage: 40 MG, 1X/DAY
     Route: 048
     Dates: start: 20040101
  8. METOPROLOL [Concomitant]
     Dosage: 100 MG, UNK
  9. AMIODARONE [Concomitant]
     Dosage: 200 MG, UNK

REACTIONS (2)
  - OROPHARYNGEAL PAIN [None]
  - DYSPEPSIA [None]
